FAERS Safety Report 10948280 (Version 3)
Quarter: 2015Q2

REPORT INFORMATION
  Report Type: Spontaneous
  Country: US (occurrence: None)
  Receive Date: 20150320
  Receipt Date: 20150501
  Transmission Date: 20150821
  Serious: Yes (Hospitalization)
  Sender: FDA-Public Use
  Company Number: 2015SGN00351

PATIENT
  Age: 71 Year
  Sex: Male
  Weight: 69.2 kg

DRUGS (26)
  1. DOXORUBICIN (DOXORUBICIN) INJECTION [Suspect]
     Active Substance: DOXORUBICIN
     Indication: HODGKIN^S DISEASE
     Route: 042
     Dates: start: 20141204, end: 20150218
  2. ACYCLOVIR (ACICLOVIR) [Concomitant]
  3. ALBUTEROL (SALBUTAMOL) [Concomitant]
     Active Substance: ALBUTEROL
  4. ATORVASTATIN (ATORVASTATIN) [Concomitant]
     Active Substance: ATORVASTATIN
  5. PLAVIX (CLOPIDOGREL BISULFATE) [Concomitant]
  6. MEGACE [Concomitant]
     Active Substance: MEGESTROL ACETATE
  7. NYSTATIN (NYSTATIN) [Concomitant]
     Active Substance: NYSTATIN
  8. ZOFRAN (ONDANSETRON) [Concomitant]
  9. ACTOS [Concomitant]
     Active Substance: PIOGLITAZONE HYDROCHLORIDE
  10. BRENTUXIMAB VEDOTIN [Suspect]
     Active Substance: BRENTUXIMAB VEDOTIN
     Indication: HODGKIN^S DISEASE
     Route: 042
     Dates: start: 20141204, end: 20150218
  11. ASPIRIN (ACETYLSALICYLIC ACID) [Concomitant]
     Active Substance: ASPIRIN
  12. SAXAGLIPTIN (SAXAGLIPTIN) [Concomitant]
  13. ACETAMINOPHEN AND CODEINE [Concomitant]
     Active Substance: ACETAMINOPHEN\CODEINE PHOSPHATE
  14. BRIMONIDINE W/TIMOLOL (BRIMONIDINE, TIMOLOL) [Concomitant]
  15. VINBLASTINE (VINBLASTINE SULFATE) INJECTION [Suspect]
     Active Substance: VINBLASTINE
     Indication: HODGKIN^S DISEASE
     Route: 042
     Dates: start: 20141204, end: 20150218
  16. DACARBAZINE (DACARBAZINE) INJECTION [Suspect]
     Active Substance: DACARBAZINE
     Indication: HODGKIN^S DISEASE
     Route: 042
     Dates: start: 20141204, end: 20150218
  17. VITAMIN D3 [Concomitant]
     Active Substance: CHOLECALCIFEROL
  18. VALSARTAN + HIDROCLOROTIAZIDA (HYDROCHLOROTHIAZIDE, VALSARTAN) [Concomitant]
  19. COMPAZINE [Concomitant]
     Active Substance: PROCHLORPERAZINE MALEATE
  20. PROCHLORPERAZINE (PROCHLORPERAZINE) [Concomitant]
     Active Substance: PROCHLORPERAZINE
  21. LANTUS [Concomitant]
     Active Substance: INSULIN GLARGINE
  22. CHLORHEXIDINE (CHLORHEXIDINE GLUCONATE) [Concomitant]
  23. FILGRASTIM (FILGRASTIM) [Concomitant]
     Active Substance: FILGRASTIM
  24. LISPRO  INSULIN (INSULIN GLARGINE) [Concomitant]
  25. METFORMIN [Concomitant]
     Active Substance: METFORMIN HYDROCHLORIDE
  26. NITROGLYCERINE (GLYCERYL TRINITRATE) [Concomitant]

REACTIONS (7)
  - Blood sodium decreased [None]
  - Febrile neutropenia [None]
  - Malaise [None]
  - Chills [None]
  - Pyrexia [None]
  - Fluid retention [None]
  - Tachycardia [None]

NARRATIVE: CASE EVENT DATE: 20150228
